FAERS Safety Report 13645066 (Version 1)
Quarter: 2017Q2

REPORT INFORMATION
  Report Type: Spontaneous
  Country: US (occurrence: US)
  Receive Date: 20170612
  Receipt Date: 20170612
  Transmission Date: 20170830
  Serious: No
  Sender: FDA-Public Use
  Company Number: US-ROCHE-1144731

PATIENT
  Sex: Female

DRUGS (2)
  1. XELODA [Suspect]
     Active Substance: CAPECITABINE
     Indication: BREAST CANCER
     Dosage: 2000 MG AM
     Route: 065
     Dates: start: 20121007
  2. XELODA [Suspect]
     Active Substance: CAPECITABINE
     Dosage: 1500 MG PM
     Route: 065
     Dates: start: 20121007

REACTIONS (1)
  - Nausea [Not Recovered/Not Resolved]
